FAERS Safety Report 6918507-1 (Version None)
Quarter: 2010Q3

REPORT INFORMATION
  Report Type: 
  Country: None (occurrence: None)
  Receive Date: 20100811
  Receipt Date: 20100729
  Transmission Date: 20110219
  Serious: Yes (Congenital Anomaly, Other)
  Sender: FDA-Public Use
  Company Number: GB-PURDUE-USA-2010-0045397

PATIENT

DRUGS (5)
  1. TRAMADOL HCL [Suspect]
     Indication: DRUG EXPOSURE DURING PREGNANCY
     Route: 064
  2. ACETAMINOPHEN AND CODEINE PHOSPHATE [Suspect]
     Indication: DRUG EXPOSURE DURING PREGNANCY
     Dosage: UNK
     Route: 064
  3. PARAMOL-118 [Suspect]
     Indication: DRUG EXPOSURE DURING PREGNANCY
     Route: 064
  4. IMIPRAMINE [Suspect]
     Indication: DRUG EXPOSURE DURING PREGNANCY
     Route: 064
  5. ORTHO-GYNE T [Concomitant]

REACTIONS (3)
  - CONGENITAL MULTIPLEX ARTHROGRYPOSIS [None]
  - DRUG EXPOSURE DURING PREGNANCY [None]
  - MATERNAL DRUGS AFFECTING FOETUS [None]
